FAERS Safety Report 8371838-3 (Version None)
Quarter: 2012Q2

REPORT INFORMATION
  Report Type: 
  Country: None (occurrence: None)
  Receive Date: 20120518
  Receipt Date: 20120515
  Transmission Date: 20120825
  Serious: Yes (Hospitalization)
  Sender: FDA-Public Use
  Company Number: FR-ROCHE-1069639

PATIENT
  Age: 50 Year
  Sex: Female

DRUGS (6)
  1. FLUOROURACIL [Concomitant]
     Indication: BREAST CANCER
  2. TAXOTERE [Concomitant]
     Indication: BREAST CANCER
     Dates: start: 20120301
  3. EPIRUBICIN [Concomitant]
     Indication: BREAST CANCER
  4. HERCEPTIN [Suspect]
     Indication: PRODUCT USED FOR UNKNOWN INDICATION
     Route: 042
     Dates: start: 20110301
  5. TAMOXIFEN CITRATE [Suspect]
     Indication: BREAST CANCER
     Route: 048
     Dates: start: 20110701
  6. CYCLOPHOSPHAMIDE [Concomitant]
     Indication: BREAST CANCER

REACTIONS (1)
  - ATRIAL THROMBOSIS [None]
